FAERS Safety Report 17170238 (Version 1)
Quarter: 2019Q4

REPORT INFORMATION
  Report Type: Report from Study
  Country: US (occurrence: US)
  Receive Date: 20191218
  Receipt Date: 20191218
  Transmission Date: 20200122
  Serious: Yes (Other)
  Sender: FDA-Public Use
  Company Number: US-GLAXOSMITHKLINE-US2019AMR210385

PATIENT
  Sex: Female

DRUGS (2)
  1. LASIX [Suspect]
     Active Substance: FUROSEMIDE
     Indication: PRODUCT USED FOR UNKNOWN INDICATION
  2. BELIMUMAB [Suspect]
     Active Substance: BELIMUMAB
     Indication: SYSTEMIC LUPUS ERYTHEMATOSUS
     Dosage: 900 MG
     Route: 065

REACTIONS (25)
  - Renal impairment [Unknown]
  - Condition aggravated [Unknown]
  - Feeling abnormal [Unknown]
  - Musculoskeletal stiffness [Unknown]
  - Headache [Unknown]
  - Memory impairment [Unknown]
  - Systemic lupus erythematosus [Unknown]
  - Lupus nephritis [Unknown]
  - Butterfly rash [Unknown]
  - Arthralgia [Unknown]
  - Dyspnoea [Unknown]
  - Asthenia [Unknown]
  - Peripheral swelling [Unknown]
  - Eye swelling [Unknown]
  - Pyrexia [Unknown]
  - Joint swelling [Unknown]
  - Myalgia [Unknown]
  - Fatigue [Unknown]
  - Ill-defined disorder [Unknown]
  - Dizziness [Unknown]
  - Emotional disorder [Unknown]
  - Laboratory test abnormal [Unknown]
  - Mouth ulceration [Unknown]
  - Protein urine present [Unknown]
  - Balance disorder [Unknown]
